FAERS Safety Report 8606778 (Version 3)
Quarter: 2014Q1

REPORT INFORMATION
  Report Type: Spontaneous
  Country: US (occurrence: US)
  Receive Date: 20120611
  Receipt Date: 20140130
  Transmission Date: 20141002
  Serious: Yes (Hospitalization, Other)
  Sender: FDA-Public Use
  Company Number: US-ASTRAZENECA-2012SE35723

PATIENT
  Age: 55 Year
  Sex: Female

DRUGS (17)
  1. NEXIUM [Suspect]
     Route: 048
     Dates: start: 1992
  2. PREVACID [Concomitant]
     Dates: start: 1990
  3. TUMS [Concomitant]
     Dates: start: 2013
  4. ALKA-SELTZER [Concomitant]
     Dates: start: 2013
  5. MILK OF MAGNESIA [Concomitant]
     Dates: start: 1992
  6. GAVISOL [Concomitant]
     Dates: start: 1990
  7. PEPTO-BISMOL [Concomitant]
     Dates: start: 2012
  8. MYLANTA [Concomitant]
     Dates: start: 1998
  9. CILOSTOZOL [Concomitant]
     Dosage: 2X DAILY 50MG
  10. TRIAMTERENE HCTZ [Concomitant]
     Dosage: 1 DAILY 37.5 MG /HCTZ 25MG
  11. LISINOPRIL [Concomitant]
     Dosage: 1/2 DAILY 10 MG
  12. ASPIRIN [Concomitant]
     Dosage: 2 DAILY 81 MG
  13. METOPROLOL [Concomitant]
  14. CYCLOBENZAPRINE [Concomitant]
     Dosage: 3X5 MG DAILY
  15. ESTRADIOL [Concomitant]
  16. SINGULAIR [Concomitant]
  17. NAPROXEN [Concomitant]
     Dates: start: 20080408

REACTIONS (25)
  - Spinal disorder [Unknown]
  - Carpal tunnel syndrome [Unknown]
  - Torticollis [Unknown]
  - Hypoaesthesia [Unknown]
  - Cerebrovascular accident [Unknown]
  - Osteoporosis [Unknown]
  - Multiple fractures [Unknown]
  - Gastric disorder [Unknown]
  - Hand deformity [Unknown]
  - Gait disturbance [Unknown]
  - Bone loss [Unknown]
  - Arthropathy [Unknown]
  - Generalised anxiety disorder [Unknown]
  - Poor quality sleep [Unknown]
  - Disturbance in attention [Unknown]
  - Bone pain [Unknown]
  - Calcium deficiency [Unknown]
  - Arthritis [Unknown]
  - Vitamin D deficiency [Unknown]
  - Muscle spasms [Unknown]
  - Intervertebral disc protrusion [Unknown]
  - Spinal osteoarthritis [Unknown]
  - Foramen magnum stenosis [Unknown]
  - Ligament disorder [Unknown]
  - Arthralgia [Unknown]
